FAERS Safety Report 23923261 (Version 1)
Quarter: 2024Q2

REPORT INFORMATION
  Report Type: Report from Study
  Country: KR (occurrence: KR)
  Receive Date: 20240531
  Receipt Date: 20240531
  Transmission Date: 20240716
  Serious: Yes (Death)
  Sender: FDA-Public Use
  Company Number: KR-BoehringerIngelheim-2024-BI-030631

PATIENT
  Age: 76 Year
  Sex: Male
  Weight: 73.1 kg

DRUGS (9)
  1. JARDIANCE [Suspect]
     Active Substance: EMPAGLIFLOZIN
     Indication: Cardiac failure chronic
     Dosage: DAILY DOSE: 10 MILLIGRAM(S), FORM STRENGTH: 10 MILLIGRAM
     Route: 048
     Dates: start: 20231012
  2. PRADAXA CAP 110mg [Concomitant]
     Indication: Prophylaxis
     Route: 048
     Dates: start: 20170404
  3. TELMIT REND TAB 20mg [Concomitant]
     Indication: Hypertension
     Route: 048
     Dates: start: 20221124
  4. DILATR END SR TAB 16mg [Concomitant]
     Indication: Cardiac failure chronic
     Route: 048
     Dates: start: 20231012
  5. LASIX TAB [Concomitant]
     Indication: Prophylaxis
     Dosage: DAILY DOSE 0.5 TABLET
     Route: 048
     Dates: start: 20150605
  6. FEBURIC TAB 40mg [Concomitant]
     Indication: Gout
     Route: 048
     Dates: start: 20170502
  7. DIABEX TAB 250mg [Concomitant]
     Indication: Diabetes mellitus
     Route: 048
  8. TRIZINE TAB 20mg [Concomitant]
     Indication: Prophylaxis
     Route: 048
  9. ANGIDERM PATCH 0.2mg/ h [Concomitant]
     Indication: Prophylaxis
     Route: 062
     Dates: start: 20221124

REACTIONS (1)
  - Death [Fatal]

NARRATIVE: CASE EVENT DATE: 20231213
